FAERS Safety Report 19963464 (Version 1)
Quarter: 2021Q4

REPORT INFORMATION
  Report Type: Spontaneous
  Country: US (occurrence: US)
  Receive Date: 20211018
  Receipt Date: 20211018
  Transmission Date: 20220303
  Serious: Yes (Hospitalization, Other)
  Sender: FDA-Public Use
  Company Number: US-MLMSERVICE-20211005-3140678-2

PATIENT
  Age: 28 Year
  Sex: Female

DRUGS (3)
  1. CISPLATIN [Suspect]
     Active Substance: CISPLATIN
     Indication: Metastases to bone
     Dosage: DAY 1. CUMULATIVE DOSE: 70 MG/M2
  2. DOXORUBICIN [Suspect]
     Active Substance: DOXORUBICIN
     Indication: Non-renal cell carcinoma of kidney
     Dosage: DAY 1. CUMULATIVE DOSE: 30 MG/M2
  3. BORTEZOMIB [Suspect]
     Active Substance: BORTEZOMIB
     Indication: Metastases to bone
     Dosage: DAY 1,4,8. CUMULATIVE DOSE: 3.9

REACTIONS (4)
  - Tumour lysis syndrome [Recovered/Resolved]
  - Cardiac failure [Recovered/Resolved]
  - Pseudomonal sepsis [Recovered/Resolved]
  - Off label use [Unknown]
